FAERS Safety Report 8901304 (Version 1)
Quarter: 2012Q4

REPORT INFORMATION
  Report Type: 
  Country: US (occurrence: US)
  Receive Date: 20121109
  Receipt Date: 20121109
  Transmission Date: 20130627
  Serious: Yes (Other)
  Sender: FDA-Public Use
  Company Number: US-PFIZER INC-2012279527

PATIENT

DRUGS (1)
  1. LYRICA [Suspect]

REACTIONS (3)
  - Hallucination [Unknown]
  - Weight increased [Unknown]
  - Headache [Unknown]
